FAERS Safety Report 9822541 (Version 2)
Quarter: 2014Q1

REPORT INFORMATION
  Report Type: Spontaneous
  Country: US (occurrence: US)
  Receive Date: 20140116
  Receipt Date: 20140214
  Transmission Date: 20141002
  Serious: Yes (Death, Life-Threatening, Hospitalization, Other)
  Sender: FDA-Public Use
  Company Number: US-MERCK-1401USA007078

PATIENT
  Sex: Male

DRUGS (4)
  1. JANUVIA [Suspect]
     Indication: TYPE 2 DIABETES MELLITUS
     Dosage: 100 MG, QD
     Route: 048
     Dates: start: 20070904, end: 20071004
  2. JANUVIA [Suspect]
     Dosage: 100 MG, QD
     Route: 048
     Dates: start: 20080505
  3. GLYBURIDE [Concomitant]
     Indication: TYPE 2 DIABETES MELLITUS
  4. METFORMIN [Concomitant]
     Indication: TYPE 2 DIABETES MELLITUS

REACTIONS (31)
  - Pancreatic carcinoma [Fatal]
  - Sepsis [Fatal]
  - Chronic obstructive pulmonary disease [Not Recovered/Not Resolved]
  - Myocardial infarction [Not Recovered/Not Resolved]
  - Deafness [Unknown]
  - Cholecystectomy [Unknown]
  - Surgery [Unknown]
  - Coronary artery bypass [Unknown]
  - Renal failure chronic [Not Recovered/Not Resolved]
  - Diabetic gastroparesis [Unknown]
  - Hypokalaemia [Unknown]
  - Atelectasis [Unknown]
  - Hyperlipidaemia [Unknown]
  - Hypertension [Unknown]
  - Umbilical hernia [Unknown]
  - Umbilical hernia repair [Unknown]
  - Pneumonia [Unknown]
  - Bronchitis [Unknown]
  - Urosepsis [Unknown]
  - Confusional state [Unknown]
  - Confusional state [Unknown]
  - Aspergillus infection [Unknown]
  - Debridement [Unknown]
  - Urinary retention [Not Recovered/Not Resolved]
  - Spinal column stenosis [Unknown]
  - Anxiety [Unknown]
  - Malnutrition [Unknown]
  - Metabolic encephalopathy [Unknown]
  - Failure to thrive [Unknown]
  - Syncope [Unknown]
  - Back pain [Not Recovered/Not Resolved]
